FAERS Safety Report 15460123 (Version 1)
Quarter: 2018Q4

REPORT INFORMATION
  Report Type: Spontaneous
  Country: US (occurrence: US)
  Receive Date: 20181003
  Receipt Date: 20181003
  Transmission Date: 20190204
  Serious: Yes (Other)
  Sender: FDA-Public Use
  Company Number: US-PFIZER INC-2018394912

PATIENT
  Age: 36 Year
  Sex: Male
  Weight: 79.38 kg

DRUGS (5)
  1. LYRICA [Suspect]
     Active Substance: PREGABALIN
     Indication: MIGRAINE
  2. LYRICA [Suspect]
     Active Substance: PREGABALIN
     Indication: SLEEP DISORDER
  3. LYRICA [Suspect]
     Active Substance: PREGABALIN
     Indication: ARTHRALGIA
     Dosage: UNK, 1X/DAY [IN THE EVENING]
     Dates: start: 2010
  4. LYRICA [Suspect]
     Active Substance: PREGABALIN
     Indication: RESTLESS LEGS SYNDROME
     Dosage: UNK, 3 OR 4 TIMES A DAY
     Dates: start: 2010
  5. INVEGA SUSTENNA [Concomitant]
     Active Substance: PALIPERIDONE PALMITATE
     Indication: PSYCHOTIC DISORDER
     Dosage: 39 MG, MONTHLY, (ONCE A MONTH SHOT)

REACTIONS (7)
  - Product use in unapproved indication [Unknown]
  - Nausea [Unknown]
  - Drug effective for unapproved indication [Unknown]
  - Intentional product misuse [Unknown]
  - Dependence [Unknown]
  - Suicidal ideation [Unknown]
  - Testicular pain [Recovering/Resolving]
